FAERS Safety Report 11893321 (Version 1)
Quarter: 2016Q1

REPORT INFORMATION
  Report Type: Spontaneous
  Country: AT (occurrence: AT)
  Receive Date: 20160106
  Receipt Date: 20160106
  Transmission Date: 20160526
  Serious: Yes (Other)
  Sender: FDA-Public Use
  Company Number: AT-009507513-1601AUT001254

PATIENT
  Age: 33 Year
  Sex: Male

DRUGS (7)
  1. CARMUSTINE [Suspect]
     Active Substance: CARMUSTINE
     Indication: ANAPLASTIC LARGE-CELL LYMPHOMA
     Dates: start: 201305
  2. MELPHALAN [Suspect]
     Active Substance: MELPHALAN
     Indication: ANAPLASTIC LARGE-CELL LYMPHOMA
     Dates: start: 201305
  3. ETOPOSIDE. [Suspect]
     Active Substance: ETOPOSIDE
     Indication: ANAPLASTIC LARGE-CELL LYMPHOMA
     Dates: start: 201305
  4. CISPLATIN. [Suspect]
     Active Substance: CISPLATIN
     Indication: ANAPLASTIC LARGE-CELL LYMPHOMA
     Dates: start: 201302
  5. DEXAMETHASONE. [Suspect]
     Active Substance: DEXAMETHASONE
     Indication: ANAPLASTIC LARGE-CELL LYMPHOMA
     Dates: start: 201302
  6. GEMCITABINE [Suspect]
     Active Substance: GEMCITABINE\GEMCITABINE HYDROCHLORIDE
     Indication: ANAPLASTIC LARGE-CELL LYMPHOMA
     Dates: start: 201302
  7. CYTARABINE. [Suspect]
     Active Substance: CYTARABINE
     Indication: ANAPLASTIC LARGE-CELL LYMPHOMA
     Dates: start: 201305

REACTIONS (6)
  - Deep vein thrombosis [Unknown]
  - Febrile neutropenia [Unknown]
  - Mucosal inflammation [Unknown]
  - Abdominal pain [Unknown]
  - Diarrhoea [Unknown]
  - Pulmonary embolism [Unknown]
